FAERS Safety Report 6183253-1 (Version None)
Quarter: 2009Q2

REPORT INFORMATION
  Report Type: 
  Country: None (occurrence: None)
  Receive Date: 20090507
  Receipt Date: 20090427
  Transmission Date: 20091009
  Serious: Yes (Hospitalization)
  Sender: FDA-Public Use
  Company Number: DE-AMGEN-UK344643

PATIENT
  Sex: Female

DRUGS (4)
  1. ARANESP [Suspect]
     Indication: DRUG USE FOR UNKNOWN INDICATION
     Route: 058
     Dates: start: 20060715, end: 20060715
  2. DOCETAXEL [Concomitant]
     Route: 042
     Dates: start: 20060714, end: 20060714
  3. DOXORUBICIN HCL [Concomitant]
     Route: 042
     Dates: start: 20060714, end: 20060714
  4. CYCLOPHOSPHAMIDE [Concomitant]
     Route: 042
     Dates: start: 20060714, end: 20060714

REACTIONS (4)
  - FALL [None]
  - MALAISE [None]
  - PERIORBITAL HAEMATOMA [None]
  - PYREXIA [None]
